FAERS Safety Report 18649687 (Version 1)
Quarter: 2020Q4

REPORT INFORMATION
  Report Type: Spontaneous
  Country: US (occurrence: US)
  Receive Date: 20201222
  Receipt Date: 20201222
  Transmission Date: 20210114
  Serious: No
  Sender: FDA-Public Use
  Company Number: US-PFIZER INC-2018458942

PATIENT
  Age: 77 Year
  Sex: Male

DRUGS (8)
  1. LORAZEPAM. [Concomitant]
     Active Substance: LORAZEPAM
  2. METHOTREXATE. [Concomitant]
     Active Substance: METHOTREXATE
  3. LYRICA [Concomitant]
     Active Substance: PREGABALIN
  4. XELJANZ XR [Suspect]
     Active Substance: TOFACITINIB CITRATE
     Dosage: 11 MG
  5. FINASTERIDE. [Concomitant]
     Active Substance: FINASTERIDE
  6. FOLIC ACID. [Concomitant]
     Active Substance: FOLIC ACID
  7. TAMSULOSIN [Concomitant]
     Active Substance: TAMSULOSIN
  8. PREDNISONE. [Concomitant]
     Active Substance: PREDNISONE

REACTIONS (1)
  - Hypoacusis [Unknown]
